FAERS Safety Report 6543226-3 (Version None)
Quarter: 2010Q1

REPORT INFORMATION
  Report Type: 
  Country: None (occurrence: None)
  Receive Date: 20100120
  Receipt Date: 20100115
  Transmission Date: 20100710
  Serious: Yes (Life-Threatening, Hospitalization)
  Sender: FDA-Public Use
  Company Number: HQ1011110FEB2000

PATIENT
  Sex: Male
  Weight: 10 kg

DRUGS (13)
  1. REFACTO [Suspect]
     Indication: FACTOR VIII DEFICIENCY
     Route: 042
     Dates: start: 19990901
  2. REFACTO [Suspect]
     Dosage: 2X100 IU/KG/D
     Route: 042
     Dates: start: 20000121, end: 20000227
  3. REFACTO [Suspect]
     Dosage: 2X75 IU/KG/D
     Route: 042
     Dates: start: 20000228, end: 20000327
  4. REFACTO [Suspect]
     Dosage: 1X100 IU/KG/D
     Route: 042
     Dates: start: 20000328, end: 20000403
  5. REFACTO [Suspect]
     Dosage: 1X100 IU/KG PER 2 DAYS
     Route: 042
     Dates: start: 20000404, end: 20000501
  6. REFACTO [Suspect]
     Dosage: 100 IU/KG 2 TIMES PER WEEK
     Route: 042
     Dates: start: 20000501, end: 20010101
  7. REFACTO [Suspect]
     Dosage: 70 IU/KG 2 TIMES PER WEEK
     Route: 042
     Dates: start: 20010101, end: 20010201
  8. REFACTO [Suspect]
     Dosage: 2X 1000 IU PER WEEK
     Route: 042
     Dates: start: 20010201, end: 20010820
  9. REFACTO [Suspect]
     Dosage: 1000 IU PER DAY
     Route: 042
     Dates: start: 20010821, end: 20010828
  10. REFACTO [Suspect]
     Dosage: 2X 1000 IU PER WEEK
     Route: 042
     Dates: start: 20010829
  11. SULTANOL [Concomitant]
     Indication: BRONCHITIS CHRONIC
     Dosage: 0.175 MG/KG
  12. ATROVENT [Concomitant]
     Dosage: IF REQUIRED
     Route: 055
  13. PULMICORT [Concomitant]
     Indication: BRONCHITIS CHRONIC
     Dosage: 125 MG/DAILY

REACTIONS (7)
  - DEVICE RELATED INFECTION [None]
  - ENTERITIS [None]
  - FACTOR VIII INHIBITION [None]
  - FOOT FRACTURE [None]
  - HAEMARTHROSIS [None]
  - HAEMATOMA [None]
  - TRAUMATIC BRAIN INJURY [None]
